FAERS Safety Report 25487249 (Version 2)
Quarter: 2025Q3

REPORT INFORMATION
  Report Type: Spontaneous
  Country: JP (occurrence: JP)
  Receive Date: 20250627
  Receipt Date: 20250714
  Transmission Date: 20251020
  Serious: Yes (Other)
  Sender: GLAXOSMITHKLINE
  Company Number: JP-GSK-JP2025JPN077190

PATIENT
  Age: 93 Year
  Sex: Male

DRUGS (1)
  1. DAPRODUSTAT [Suspect]
     Active Substance: DAPRODUSTAT

REACTIONS (5)
  - Myelosuppression [Unknown]
  - General physical health deterioration [Unknown]
  - Anaemia [Unknown]
  - Malnutrition [Unknown]
  - Therapeutic response decreased [Unknown]
